FAERS Safety Report 20782174 (Version 1)
Quarter: 2022Q2

REPORT INFORMATION
  Report Type: Spontaneous
  Country: ES (occurrence: ES)
  Receive Date: 20220504
  Receipt Date: 20220504
  Transmission Date: 20220721
  Serious: Yes (Life-Threatening)
  Sender: FDA-Public Use
  Company Number: None

PATIENT
  Age: 47 Year
  Sex: Male

DRUGS (5)
  1. BUPROPION HYDROCHLORIDE [Suspect]
     Active Substance: BUPROPION HYDROCHLORIDE
     Indication: Tobacco abuse
     Dosage: 150 MG (150.0 MG DE)
     Route: 048
     Dates: start: 20220318, end: 20220416
  2. LORAZEPAM [Concomitant]
     Active Substance: LORAZEPAM
     Indication: Insomnia
     Dosage: 1 MG, QD (1.0 MG C/24 H NOC)
     Route: 048
     Dates: start: 20220317
  3. ATORVASTATIN [Concomitant]
     Active Substance: ATORVASTATIN
     Indication: Type V hyperlipidaemia
     Dosage: 20 MG (20.0 MG CE)
     Route: 048
     Dates: start: 20161215
  4. CICLOPIROX [Concomitant]
     Active Substance: CICLOPIROX
     Indication: Seborrhoeic dermatitis
     Dosage: 2.0 APLIC C/72 HORAS
     Route: 061
     Dates: start: 20220406
  5. CANDESARTAN CILEXETIL\HYDROCHLOROTHIAZIDE [Concomitant]
     Active Substance: CANDESARTAN CILEXETIL\HYDROCHLOROTHIAZIDE
     Indication: Essential hypertension
     Dosage: 160 MG (16.0 MG DE)
     Route: 048
     Dates: start: 20220421

REACTIONS (1)
  - Palpitations [Recovered/Resolved]

NARRATIVE: CASE EVENT DATE: 20220330
